FAERS Safety Report 4745227-4 (Version None)
Quarter: 2005Q3

REPORT INFORMATION
  Report Type: 
  Country: None (occurrence: None)
  Receive Date: 20050812
  Receipt Date: 20050801
  Transmission Date: 20060218
  Serious: Yes (Other)
  Sender: FDA-Public Use
  Company Number: 2005-08-0001

PATIENT

DRUGS (1)
  1. QVAR 40 [Suspect]
     Indication: ASTHMA

REACTIONS (1)
  - EOSINOPHILIC PNEUMONIA CHRONIC [None]
